FAERS Safety Report 9645291 (Version 1)
Quarter: 2013Q4

REPORT INFORMATION
  Report Type: Spontaneous
  Country: ES (occurrence: ES)
  Receive Date: 20131025
  Receipt Date: 20131025
  Transmission Date: 20140711
  Serious: Yes (Other)
  Sender: FDA-Public Use
  Company Number: ES-UCBSA-101059

PATIENT
  Age: 16 Year
  Sex: Female

DRUGS (1)
  1. CIMZIA [Suspect]
     Indication: JUVENILE IDIOPATHIC ARTHRITIS
     Dosage: DOSE: UNKNOWN

REACTIONS (2)
  - Rash generalised [Unknown]
  - Urticaria [Unknown]
